FAERS Safety Report 23631048 (Version 1)
Quarter: 2024Q1

REPORT INFORMATION
  Report Type: Spontaneous
  Country: US (occurrence: None)
  Receive Date: 20240313
  Receipt Date: 20240313
  Transmission Date: 20240409
  Serious: Yes (Hospitalization)
  Sender: FDA-Public Use
  Company Number: None

PATIENT
  Sex: Male

DRUGS (2)
  1. ALECENSA [Suspect]
     Active Substance: ALECTINIB HYDROCHLORIDE
     Indication: Lung carcinoma cell type unspecified stage 0
     Dosage: OTHER FREQUENCY : 2 DAY WITH FOOD;?
     Route: 048
     Dates: start: 20220419
  2. LORBRENA [Concomitant]
     Active Substance: LORLATINIB

REACTIONS (2)
  - Surgery [None]
  - Intentional dose omission [None]
